FAERS Safety Report 7845624-4 (Version None)
Quarter: 2011Q4

REPORT INFORMATION
  Report Type: 
  Country: None (occurrence: None)
  Receive Date: 20111025
  Receipt Date: 20111014
  Transmission Date: 20120403
  Serious: Yes (Other)
  Sender: FDA-Public Use
  Company Number: IT-TEVA-306290ISR

PATIENT
  Sex: Male

DRUGS (3)
  1. METHOTREXATE [Suspect]
     Indication: ACUTE LYMPHOCYTIC LEUKAEMIA
     Dosage: 5900 MILLIGRAM;
     Route: 042
     Dates: start: 20110227, end: 20110307
  2. VINDESINA SOLFATO [Concomitant]
  3. DECADRON [Concomitant]

REACTIONS (1)
  - HYPERBILIRUBINAEMIA [None]
